FAERS Safety Report 5697597-0 (Version None)
Quarter: 2008Q2

REPORT INFORMATION
  Report Type: 
  Country: None (occurrence: None)
  Receive Date: 20080408
  Receipt Date: 20080407
  Transmission Date: 20081010
  Serious: Yes (Other)
  Sender: FDA-Public Use
  Company Number: A0713962A

PATIENT
  Age: 70 Year
  Sex: Female

DRUGS (1)
  1. NICODERM CQ [Suspect]
     Indication: SMOKING CESSATION THERAPY
     Route: 062
     Dates: start: 20080207

REACTIONS (10)
  - APPLICATION SITE ERYTHEMA [None]
  - APPLICATION SITE PRURITUS [None]
  - CRYING [None]
  - DEPRESSION [None]
  - ERYTHEMA [None]
  - NICOTINE DEPENDENCE [None]
  - NIGHTMARE [None]
  - POOR QUALITY SLEEP [None]
  - PRURITUS [None]
  - SUICIDAL IDEATION [None]
